FAERS Safety Report 13960686 (Version 1)
Quarter: 2017Q3

REPORT INFORMATION
  Report Type: Spontaneous
  Country: US (occurrence: US)
  Receive Date: 20170912
  Receipt Date: 20170912
  Transmission Date: 20171128
  Serious: No
  Sender: FDA-Public Use
  Company Number: US-BAYER-2017-167666

PATIENT
  Age: 63 Year
  Sex: Female

DRUGS (4)
  1. MIRALAX [Suspect]
     Active Substance: POLYETHYLENE GLYCOL 3350
     Indication: CONSTIPATION
     Dosage: UNK, QOD
     Route: 048
  2. MIRALAX [Suspect]
     Active Substance: POLYETHYLENE GLYCOL 3350
     Indication: CONSTIPATION
     Dosage: UNK, QOD
     Route: 048
     Dates: end: 20170829
  3. FIBER [Concomitant]
     Active Substance: PSYLLIUM HUSK
     Dosage: UNK
  4. COLACE [Concomitant]
     Active Substance: DOCUSATE SODIUM
     Dosage: UNK

REACTIONS (5)
  - Poor quality drug administered [Unknown]
  - Product use issue [Unknown]
  - Product taste abnormal [Unknown]
  - Wrong technique in product usage process [Unknown]
  - Pain [Unknown]

NARRATIVE: CASE EVENT DATE: 20170829
